FAERS Safety Report 6224517-2 (Version None)
Quarter: 2009Q2

REPORT INFORMATION
  Report Type: 
  Country: None (occurrence: None)
  Receive Date: 20090612
  Receipt Date: 20090403
  Transmission Date: 20091009
  Serious: No
  Sender: FDA-Public Use
  Company Number: US-ABBOTT-09P-163-0563768-00

PATIENT
  Sex: Female
  Weight: 136.2 kg

DRUGS (11)
  1. HUMIRA [Suspect]
     Indication: PSORIATIC ARTHROPATHY
     Dosage: LOADING DOSE
     Route: 058
     Dates: start: 20090313
  2. HUMIRA [Suspect]
  3. JANUMET [Concomitant]
     Indication: DIABETES MELLITUS
     Dosage: 50/1000
     Route: 048
  4. ACTOPLUS MET [Concomitant]
     Indication: DIABETES MELLITUS
     Dosage: 15/850
     Route: 048
  5. GLIMIPERIDE [Concomitant]
     Indication: DIABETES MELLITUS
     Route: 048
  6. SIMVASTATIN [Concomitant]
     Indication: BLOOD CHOLESTEROL INCREASED
     Route: 048
  7. HYDROCHLOROTHIAZIDE W/QUINAPRIL [Concomitant]
     Indication: HYPERTENSION
     Dosage: 20/12.5
     Route: 048
  8. ASPIRIN [Concomitant]
     Indication: CARDIOVASCULAR EVENT PROPHYLAXIS
     Route: 048
  9. VICODIN [Concomitant]
     Indication: ARTHRALGIA
     Route: 048
  10. VICODIN [Concomitant]
  11. HYDROXYZINE [Concomitant]
     Indication: PRURITUS
     Route: 048

REACTIONS (1)
  - FURUNCLE [None]
